FAERS Safety Report 22845304 (Version 5)
Quarter: 2025Q2

REPORT INFORMATION
  Report Type: Spontaneous
  Country: IT (occurrence: IT)
  Receive Date: 20230821
  Receipt Date: 20250627
  Transmission Date: 20250716
  Serious: Yes (Other)
  Sender: PFIZER
  Company Number: IT-ROCHE-3399561

PATIENT
  Age: 59 Year
  Sex: Female
  Weight: 52 kg

DRUGS (41)
  1. DOXORUBICIN HYDROCHLORIDE [Suspect]
     Active Substance: DOXORUBICIN HYDROCHLORIDE
     Indication: Chronic lymphocytic leukaemia
     Dates: start: 20230714, end: 20230805
  2. DOXORUBICIN HYDROCHLORIDE [Suspect]
     Active Substance: DOXORUBICIN HYDROCHLORIDE
     Indication: Richter^s syndrome
  3. RITUXIMAB [Suspect]
     Active Substance: RITUXIMAB
     Indication: Chronic lymphocytic leukaemia
     Dates: start: 201111, end: 2011
  4. RITUXIMAB [Suspect]
     Active Substance: RITUXIMAB
     Dates: start: 201407, end: 201501
  5. RITUXIMAB [Suspect]
     Active Substance: RITUXIMAB
     Dates: start: 20200801, end: 20230501
  6. RITUXIMAB [Suspect]
     Active Substance: RITUXIMAB
     Dates: start: 20230501, end: 20230701
  7. RITUXIMAB [Suspect]
     Active Substance: RITUXIMAB
     Dates: start: 20230714
  8. RITUXIMAB [Suspect]
     Active Substance: RITUXIMAB
  9. RITUXIMAB [Suspect]
     Active Substance: RITUXIMAB
  10. RITUXIMAB [Suspect]
     Active Substance: RITUXIMAB
  11. VINCRISTINE SULFATE [Suspect]
     Active Substance: VINCRISTINE SULFATE
     Indication: Chronic lymphocytic leukaemia
     Dates: start: 20230714, end: 20230805
  12. VINCRISTINE SULFATE [Suspect]
     Active Substance: VINCRISTINE SULFATE
     Indication: Richter^s syndrome
  13. RUXIENCE [Suspect]
     Active Substance: RITUXIMAB-PVVR
     Indication: Chronic lymphocytic leukaemia
     Dates: start: 20230714, end: 20230805
  14. RUXIENCE [Suspect]
     Active Substance: RITUXIMAB-PVVR
     Indication: Richter^s syndrome
     Dates: start: 20230805
  15. FLUDARABINE PHOSPHATE [Suspect]
     Active Substance: FLUDARABINE PHOSPHATE
     Indication: Chronic lymphocytic leukaemia
     Dates: start: 20111101, end: 20120401
  16. BENDAMUSTINE [Suspect]
     Active Substance: BENDAMUSTINE
     Indication: Chronic lymphocytic leukaemia
     Dates: start: 20140701, end: 20150101
  17. IDELALISIB [Suspect]
     Active Substance: IDELALISIB
     Indication: Chronic lymphocytic leukaemia
     Dates: start: 20230501, end: 20230701
  18. IBRUTINIB [Suspect]
     Active Substance: IBRUTINIB
     Indication: Chronic lymphocytic leukaemia
     Dates: start: 20170101, end: 20200701
  19. PREDNISONE [Suspect]
     Active Substance: PREDNISONE
     Indication: Chronic lymphocytic leukaemia
     Dates: start: 20230714, end: 20230805
  20. PREDNISONE [Suspect]
     Active Substance: PREDNISONE
     Indication: Richter^s syndrome
  21. CYCLOPHOSPHAMIDE [Suspect]
     Active Substance: CYCLOPHOSPHAMIDE
     Indication: Chronic lymphocytic leukaemia
     Dates: start: 20111101, end: 20120401
  22. CYCLOPHOSPHAMIDE [Suspect]
     Active Substance: CYCLOPHOSPHAMIDE
     Indication: Richter^s syndrome
     Dates: start: 20230714, end: 20230805
  23. MABTHERA [Suspect]
     Active Substance: RITUXIMAB
     Indication: Chronic lymphocytic leukaemia
     Dates: start: 20111101, end: 20120401
  24. MABTHERA [Suspect]
     Active Substance: RITUXIMAB
     Dates: start: 20140701, end: 20150101
  25. VENETOCLAX [Suspect]
     Active Substance: VENETOCLAX
     Indication: Chronic lymphocytic leukaemia
     Dates: start: 20200801, end: 20230501
  26. BACTRIM [Concomitant]
     Active Substance: SULFAMETHOXAZOLE\TRIMETHOPRIM
  27. ALLOPURINOL [Concomitant]
     Active Substance: ALLOPURINOL
  28. XANAX [Concomitant]
     Active Substance: ALPRAZOLAM
  29. OMEGA-3-ACID ETHYL ESTERS [Concomitant]
     Active Substance: OMEGA-3-ACID ETHYL ESTERS
  30. ACETAMINOPHEN\OXYCODONE HYDROCHLORIDE [Concomitant]
     Active Substance: ACETAMINOPHEN\OXYCODONE HYDROCHLORIDE
  31. ESCITALOPRAM [Concomitant]
     Active Substance: ESCITALOPRAM OXALATE
  32. CANRENOATE POTASSIUM [Concomitant]
     Active Substance: CANRENOATE POTASSIUM
  33. ENOXAPARIN [Concomitant]
     Active Substance: ENOXAPARIN
  34. LAMIVUDINE [Concomitant]
     Active Substance: LAMIVUDINE
  35. ATORVASTATIN [Concomitant]
     Active Substance: ATORVASTATIN
  36. ZYDELIG [Concomitant]
     Active Substance: IDELALISIB
  37. ACYCLOVIR [Concomitant]
     Active Substance: ACYCLOVIR
  38. FOLIC ACID [Concomitant]
     Active Substance: FOLIC ACID
  39. BROMAZEPAM [Concomitant]
     Active Substance: BROMAZEPAM
  40. NALOXONE HYDROCHLORIDE\OXYCODONE HYDROCHLORIDE [Concomitant]
     Active Substance: NALOXONE HYDROCHLORIDE\OXYCODONE HYDROCHLORIDE
  41. PANTOPRAZOLE [Concomitant]
     Active Substance: PANTOPRAZOLE

REACTIONS (3)
  - Clostridium difficile colitis [Recovered/Resolved]
  - Chronic lymphocytic leukaemia [Unknown]
  - Malignant neoplasm progression [Unknown]

NARRATIVE: CASE EVENT DATE: 20230716
